FAERS Safety Report 9704411 (Version 1)
Quarter: 2013Q4

REPORT INFORMATION
  Report Type: Spontaneous
  Country: US (occurrence: US)
  Receive Date: 20131122
  Receipt Date: 20131122
  Transmission Date: 20140711
  Serious: No
  Sender: FDA-Public Use
  Company Number: US-BAYER-2013-142868

PATIENT
  Age: 87 Year
  Sex: Male
  Weight: 87.98 kg

DRUGS (1)
  1. ALEVE TABLET [Suspect]
     Indication: BACK PAIN
     Dosage: 2 DF, ONCE
     Route: 048

REACTIONS (1)
  - Drug ineffective [None]
